FAERS Safety Report 7018208-8 (Version None)
Quarter: 2010Q3

REPORT INFORMATION
  Report Type: 
  Country: None (occurrence: None)
  Receive Date: 20100928
  Receipt Date: 20100917
  Transmission Date: 20110219
  Serious: No
  Sender: FDA-Public Use
  Company Number: KR-JNJFOC-20100901364

PATIENT
  Age: 79 Year
  Sex: Male

DRUGS (3)
  1. DURAGESIC-100 [Suspect]
     Indication: PAIN MANAGEMENT
     Route: 062
  2. DURAGESIC-100 [Suspect]
     Dosage: HALF A PATCH OF 12.5 UG/HR
     Route: 062
  3. MOTILIUM-M [Concomitant]
     Indication: ANTIEMETIC SUPPORTIVE CARE
     Dosage: 2 TABLETS (10 MG) THREE TIMES A DAY
     Route: 048

REACTIONS (7)
  - ASTHENIA [None]
  - CHILLS [None]
  - DIZZINESS [None]
  - DRUG ADMINISTRATION ERROR [None]
  - HEADACHE [None]
  - PYREXIA [None]
  - THERAPY CESSATION [None]
